FAERS Safety Report 5535579-X (Version None)
Quarter: 2007Q4

REPORT INFORMATION
  Report Type: 
  Country: None (occurrence: None)
  Receive Date: 20071204
  Receipt Date: 20071126
  Transmission Date: 20080405
  Serious: Yes (Hospitalization, Disabling, Other)
  Sender: FDA-Public Use
  Company Number: 163-21880-06080464

PATIENT
  Age: 64 Year
  Sex: Male

DRUGS (10)
  1. REVLIMID [Suspect]
     Indication: MULTIPLE MYELOMA
     Dosage: 10 MG, 1 IN 1 D, ORAL, 5 MG, 1 IN 1 D, ORAL, 2.5 MG, 1 IN 2 D, ORAL
     Route: 048
     Dates: start: 20060803, end: 20060822
  2. REVLIMID [Suspect]
     Indication: MULTIPLE MYELOMA
     Dosage: 10 MG, 1 IN 1 D, ORAL, 5 MG, 1 IN 1 D, ORAL, 2.5 MG, 1 IN 2 D, ORAL
     Route: 048
     Dates: start: 20060929, end: 20061012
  3. REVLIMID [Suspect]
     Indication: MULTIPLE MYELOMA
     Dosage: 10 MG, 1 IN 1 D, ORAL, 5 MG, 1 IN 1 D, ORAL, 2.5 MG, 1 IN 2 D, ORAL
     Route: 048
     Dates: start: 20070404
  4. DEXAMETHASONE TAB [Concomitant]
  5. ZOMETA [Concomitant]
  6. PLAVIX [Concomitant]
  7. PEPCID AC [Concomitant]
  8. CIPRO (CIPROGFLOXACIN) (250 MILLIGRAM) [Concomitant]
  9. ALLOPURINOL [Concomitant]
  10. PERCOCET [Concomitant]

REACTIONS (26)
  - ABDOMINAL PAIN [None]
  - ANOREXIA [None]
  - BACK PAIN [None]
  - BLOOD UREA INCREASED [None]
  - DEHYDRATION [None]
  - DRUG INTOLERANCE [None]
  - DYSGEUSIA [None]
  - DYSPHONIA [None]
  - DYSPNOEA [None]
  - FATIGUE [None]
  - FLUID INTAKE REDUCED [None]
  - GAIT DISTURBANCE [None]
  - HAEMOGLOBIN DECREASED [None]
  - HEART RATE IRREGULAR [None]
  - HYPERTENSION [None]
  - INTERNATIONAL NORMALISED RATIO DECREASED [None]
  - MELAENA [None]
  - MUSCLE SPASMS [None]
  - NAUSEA [None]
  - PAIN [None]
  - PYREXIA [None]
  - RED BLOOD CELL COUNT DECREASED [None]
  - SYNCOPE [None]
  - TACHYCARDIA [None]
  - TREMOR [None]
  - WHITE BLOOD CELL COUNT DECREASED [None]
